FAERS Safety Report 5910711-4 (Version None)
Quarter: 2008Q4

REPORT INFORMATION
  Report Type: 
  Country: None (occurrence: None)
  Receive Date: 20081007
  Receipt Date: 20081002
  Transmission Date: 20090506
  Serious: No
  Sender: FDA-Public Use
  Company Number: JP-EISAI MEDICAL RESEARCH-E2020-03269-SPO-JP

PATIENT
  Sex: Female

DRUGS (7)
  1. ARICEPT [Suspect]
     Indication: DEMENTIA ALZHEIMER'S TYPE
     Route: 048
     Dates: start: 20080718, end: 20080724
  2. ARICEPT [Suspect]
     Route: 048
     Dates: start: 20080725, end: 20080807
  3. ARICEPT [Suspect]
     Route: 048
     Dates: start: 20080808, end: 20080821
  4. CLOPIDOGREL SULFATRE [Concomitant]
     Indication: ATRIAL FIBRILLATION
     Route: 048
     Dates: start: 20080718
  5. MAGMITT [Concomitant]
     Route: 048
  6. FERROMIA [Concomitant]
     Route: 048
     Dates: end: 20080707
  7. WARFARIN SODIUM [Concomitant]
     Indication: ATRIAL FIBRILLATION
     Route: 048
     Dates: start: 20080529, end: 20080707

REACTIONS (1)
  - SINUS ARREST [None]
